FAERS Safety Report 5516877-2 (Version None)
Quarter: 2007Q4

REPORT INFORMATION
  Report Type: 
  Country: None (occurrence: None)
  Receive Date: 20071114
  Receipt Date: 20071114
  Transmission Date: 20080405
  Serious: Yes (Other)
  Sender: FDA-Public Use
  Company Number: A0694444A

PATIENT
  Sex: Female
  Weight: 56.8 kg

DRUGS (1)
  1. ALLI [Suspect]
     Dates: start: 20070617

REACTIONS (8)
  - ABDOMINAL DISTENSION [None]
  - AGGRESSION [None]
  - DEPENDENCE [None]
  - MALAISE [None]
  - MOOD ALTERED [None]
  - RECTAL DISCHARGE [None]
  - UNDERWEIGHT [None]
  - WEIGHT DECREASED [None]
